FAERS Safety Report 4929706-2 (Version None)
Quarter: 2006Q1

REPORT INFORMATION
  Report Type: 
  Country: None (occurrence: None)
  Receive Date: 20060301
  Receipt Date: 20050829
  Transmission Date: 20060701
  Serious: Yes (Other)
  Sender: FDA-Public Use
  Company Number: US-MERCK-0508USA04686

PATIENT
  Age: 77 Year
  Sex: Female
  Weight: 92 kg

DRUGS (5)
  1. VIOXX [Suspect]
     Indication: ARTHRALGIA
     Route: 048
     Dates: start: 20000412, end: 20001118
  2. VIOXX [Suspect]
     Route: 048
     Dates: start: 20001118, end: 20021001
  3. VIOXX [Suspect]
     Route: 048
     Dates: start: 20021001, end: 20021107
  4. TYLENOL (CAPLET) [Concomitant]
     Route: 065
     Dates: start: 20020318
  5. EXTRA STRENGTH TYLENOL [Concomitant]
     Route: 065
     Dates: start: 20021104

REACTIONS (3)
  - CEREBROVASCULAR ACCIDENT [None]
  - EMOTIONAL DISORDER [None]
  - MENTAL DISORDER [None]
